FAERS Safety Report 10944409 (Version 1)
Quarter: 2015Q1

REPORT INFORMATION
  Report Type: Spontaneous
  Country: US (occurrence: US)
  Receive Date: 20150323
  Receipt Date: 20150323
  Transmission Date: 20150721
  Serious: No
  Sender: FDA-Public Use
  Company Number: US-TEVA-479291USA

PATIENT
  Sex: Female

DRUGS (1)
  1. SUCRALFATE. [Suspect]
     Active Substance: SUCRALFATE

REACTIONS (5)
  - Oropharyngeal pain [Unknown]
  - Throat irritation [Unknown]
  - Dysphagia [Unknown]
  - Wrong technique in drug usage process [Unknown]
  - Product size issue [Unknown]
